FAERS Safety Report 8518993-X (Version None)
Quarter: 2012Q3

REPORT INFORMATION
  Report Type: 
  Country: None (occurrence: None)
  Receive Date: 20120718
  Receipt Date: 20120709
  Transmission Date: 20120928
  Serious: Yes (Hospitalization, Other)
  Sender: FDA-Public Use
  Company Number: US-ACTELION-A-US2010-35677

PATIENT

DRUGS (26)
  1. TRACLEER [Suspect]
     Indication: PULMONARY ARTERIAL HYPERTENSION
     Dosage: 62.5MG BID
     Route: 048
     Dates: start: 20100326
  2. VIAGRA [Suspect]
  3. GABAPENTIN [Concomitant]
  4. PROPYLENE GLYCOL [Concomitant]
  5. COENZYME Q10 [Concomitant]
  6. DIGOXIN [Concomitant]
  7. LISINOPRIL [Concomitant]
  8. METFORMIN HYDROCHLORIDE [Concomitant]
  9. NITROGLYCERIN [Concomitant]
  10. ASCORBIC ACID [Concomitant]
  11. ARTIFICIAL TEARS [Concomitant]
  12. COLECALCIFEROL [Concomitant]
  13. COUMADIN [Concomitant]
  14. METOPROLOL SUCCINATE [Concomitant]
  15. HYDROCHLOROTHIAZIDE [Concomitant]
  16. CALCIUM CHANNEL BLOCKERS [Concomitant]
  17. TRAZODONE HYDROCHLORIDE [Concomitant]
  18. ALBUTEROL [Concomitant]
  19. NOVOLIN N [Concomitant]
  20. ASPIRIN [Concomitant]
  21. PANTOPRAZOLE [Concomitant]
  22. DULOXETIME HYDROCHLORIDE [Concomitant]
  23. SIMVASTATIN [Concomitant]
  24. LORAZEPAM [Concomitant]
  25. CLOTRIMAZOLE [Concomitant]
  26. EPIPEN [Concomitant]

REACTIONS (7)
  - BRADYCARDIA [None]
  - OSTEOPOROSIS [None]
  - ARRHYTHMIA [None]
  - ATRIAL FIBRILLATION [None]
  - SYNCOPE [None]
  - DIZZINESS [None]
  - CHEST PAIN [None]
